FAERS Safety Report 10086691 (Version 1)
Quarter: 2014Q2

REPORT INFORMATION
  Report Type: Spontaneous
  Country: US (occurrence: None)
  Receive Date: 20140417
  Receipt Date: 20140417
  Transmission Date: 20141212
  Serious: Yes (Other)
  Sender: FDA-Public Use
  Company Number: None

PATIENT
  Age: 61 Year
  Sex: Female

DRUGS (3)
  1. ALBUTEROL SULFATE [Suspect]
     Indication: DYSPNOEA
     Dosage: 2.5 ML Q 4 HOURS PRN BY NEBULIZATION
     Dates: start: 20140317, end: 20140330
  2. ALBUTEROL SULFATE [Suspect]
     Indication: WHEEZING
     Dosage: 2.5 ML Q 4 HOURS PRN BY NEBULIZATION
     Dates: start: 20140317, end: 20140330
  3. ALBUTEROL SULFATE [Suspect]
     Indication: COUGH
     Dosage: 2.5 ML Q 4 HOURS PRN BY NEBULIZATION
     Dates: start: 20140317, end: 20140330

REACTIONS (3)
  - No therapeutic response [None]
  - Drug ineffective [None]
  - Ageusia [None]
